FAERS Safety Report 5850652-4 (Version None)
Quarter: 2008Q3

REPORT INFORMATION
  Report Type: 
  Country: None (occurrence: None)
  Receive Date: 20080818
  Receipt Date: 20080805
  Transmission Date: 20090109
  Serious: Yes (Life-Threatening, Disabling)
  Sender: FDA-Public Use
  Company Number: 1000000332

PATIENT
  Age: 43 Year
  Sex: Female

DRUGS (2)
  1. ESCITALOPRAM OXALATE [Suspect]
     Indication: DEPRESSION
     Dosage: 10 MG (10 MG,L IN 1 D), ORAL
     Route: 048
     Dates: start: 20080331, end: 20080617
  2. ALPRAZOLAM(0.5 MILLIGRAM, TABLETS) [Concomitant]

REACTIONS (12)
  - AGITATION [None]
  - ANOREXIA [None]
  - ANXIETY [None]
  - ASTHENIA [None]
  - CRYING [None]
  - FATIGUE [None]
  - INSOMNIA [None]
  - LOSS OF LIBIDO [None]
  - PERFORMANCE STATUS DECREASED [None]
  - RESTLESSNESS [None]
  - SKIN BURNING SENSATION [None]
  - SUICIDAL IDEATION [None]
